FAERS Safety Report 9066884 (Version 1)
Quarter: 2013Q1

REPORT INFORMATION
  Report Type: Spontaneous
  Country: US (occurrence: US)
  Receive Date: 20130214
  Receipt Date: 20130214
  Transmission Date: 20140127
  Serious: Yes (Other)
  Sender: FDA-Public Use
  Company Number: US-TARO-2013P1001967

PATIENT
  Age: 75 Year
  Sex: Female
  Weight: 74.84 kg

DRUGS (6)
  1. WARFARIN SODIUM TABLETS USP 5MG [Suspect]
     Route: 048
  2. WARFARIN SODIUM TABLETS USP 5MG [Suspect]
     Route: 048
  3. LIPITOR [Suspect]
     Dates: start: 2007, end: 2010
  4. CRESTOR [Suspect]
     Dates: start: 2010, end: 201301
  5. TOPAMAX [Concomitant]
  6. MULTIVITAMIN [Concomitant]

REACTIONS (6)
  - Cataract operation [Unknown]
  - Myalgia [Not Recovered/Not Resolved]
  - Breast cancer [Unknown]
  - Tremor [Unknown]
  - Visual impairment [Unknown]
  - Pain [Not Recovered/Not Resolved]
